FAERS Safety Report 7484415-3 (Version None)
Quarter: 2011Q2

REPORT INFORMATION
  Report Type: 
  Country: None (occurrence: None)
  Receive Date: 20110517
  Receipt Date: 20110509
  Transmission Date: 20111010
  Serious: Yes (Hospitalization)
  Sender: FDA-Public Use
  Company Number: US-AMGEN-USACT2011001004

PATIENT
  Sex: Male
  Weight: 96.3 kg

DRUGS (14)
  1. COREG [Concomitant]
  2. MAG-OX [Concomitant]
  3. EFFEXOR XR [Concomitant]
  4. PANITUMUMAB [Suspect]
     Indication: ADENOCARCINOMA PANCREAS
     Dosage: 4 MG/KG, UNK
     Route: 042
     Dates: start: 20100630
  5. GEMCITABINE [Suspect]
     Dosage: 1000 MG/M2, UNK
     Route: 042
     Dates: start: 20100630
  6. TARCEVA [Suspect]
     Dosage: 100 MG, UNK
     Route: 048
     Dates: start: 20100630
  7. RITALIN [Concomitant]
  8. CARDURA [Concomitant]
  9. LOVENOX [Concomitant]
     Dosage: UNK UNK, BID
  10. DILAUDID [Concomitant]
  11. COMPAZINE [Concomitant]
  12. ZAROXOLYN [Concomitant]
  13. PROTON PUMP INHIBITORS [Concomitant]
  14. AMOXICILLIN [Concomitant]

REACTIONS (7)
  - DEHYDRATION [None]
  - MUSCULAR WEAKNESS [None]
  - GASTRIC ULCER [None]
  - DECREASED APPETITE [None]
  - FATIGUE [None]
  - SYNCOPE [None]
  - ANAEMIA [None]
